FAERS Safety Report 9201452 (Version 2)
Quarter: 2013Q2

REPORT INFORMATION
  Report Type: Spontaneous
  Country: US (occurrence: US)
  Receive Date: 20130401
  Receipt Date: 20130614
  Transmission Date: 20140414
  Serious: Yes (Other)
  Sender: FDA-Public Use
  Company Number: US-PFIZER INC-2013102527

PATIENT
  Sex: Female

DRUGS (2)
  1. XANAX [Suspect]
     Indication: ANXIETY
     Dosage: UNK, AS NEEDED
  2. NEURONTIN [Suspect]
     Indication: PAIN
     Dosage: UNK, AS NEEDED

REACTIONS (4)
  - Bronchitis [Unknown]
  - Emphysema [Unknown]
  - Influenza [Unknown]
  - Mental disorder [Unknown]
